FAERS Safety Report 7417367-2 (Version None)
Quarter: 2011Q2

REPORT INFORMATION
  Report Type: 
  Country: None (occurrence: None)
  Receive Date: 20110415
  Receipt Date: 20110207
  Transmission Date: 20111010
  Serious: No
  Sender: FDA-Public Use
  Company Number: US-B.I. PHARMACEUTICALS,INC./RIDGEFIELD-2011-BP-03823BP

PATIENT
  Sex: Female

DRUGS (7)
  1. CYMBALTA [Suspect]
     Indication: MUSCLE DISORDER
  2. LISINOPRIL [Concomitant]
     Indication: HYPERTENSION
  3. PRADAXA [Suspect]
     Indication: ANTICOAGULANT THERAPY
     Dosage: 300 MG
     Route: 048
     Dates: start: 20110101
  4. LIPITOR [Concomitant]
     Indication: PROPHYLAXIS
  5. METHEHAM [Concomitant]
     Indication: PROPHYLAXIS
  6. METOPROLOL TARTRATE [Concomitant]
     Indication: HYPERTENSION
  7. ASPIRIN [Concomitant]
     Indication: PROPHYLAXIS

REACTIONS (2)
  - GROIN PAIN [None]
  - MUSCULOSKELETAL DISCOMFORT [None]
